FAERS Safety Report 18590316 (Version 2)
Quarter: 2020Q4

REPORT INFORMATION
  Report Type: Spontaneous
  Country: US (occurrence: US)
  Receive Date: 20201208
  Receipt Date: 20201230
  Transmission Date: 20210114
  Serious: Yes (Other)
  Sender: FDA-Public Use
  Company Number: US-GLAXOSMITHKLINE-US2020AMR239623

PATIENT
  Sex: Female

DRUGS (2)
  1. WELLBUTRIN XL [Suspect]
     Active Substance: BUPROPION HYDROCHLORIDE
     Indication: MAJOR DEPRESSION
     Dosage: 1 DF, 1D, 300 MG PLUS 150 MG TOTAL 450 MG ONCE DAILY
     Route: 048
  2. WELLBUTRIN XL [Suspect]
     Active Substance: BUPROPION HYDROCHLORIDE
     Dosage: 3 DF, 1D (3 TABLETS OF THE 150 MG TABLETS A DAY (450 MG,1 IN 1 D))
     Route: 048

REACTIONS (4)
  - Hypohidrosis [Unknown]
  - Loss of consciousness [Unknown]
  - Vomiting [Unknown]
  - Product residue present [Not Recovered/Not Resolved]

NARRATIVE: CASE EVENT DATE: 20201031
